FAERS Safety Report 5216634-0 (Version None)
Quarter: 2007Q1

REPORT INFORMATION
  Report Type: 
  Country: None (occurrence: None)
  Receive Date: 20061130
  Receipt Date: 20060420
  Transmission Date: 20070707
  Serious: Yes (Other)
  Sender: FDA-Public Use
  Company Number: US200604003391

PATIENT
  Age: 62 Year
  Sex: Female
  Weight: 86.2 kg

DRUGS (4)
  1. ZYPREXA [Suspect]
     Indication: MAJOR DEPRESSION
     Dosage: 2.5 MG
     Dates: start: 20010101
  2. KLONOPIN [Concomitant]
  3. TRAZODONE HCL [Concomitant]
  4. CELEXA [Concomitant]

REACTIONS (6)
  - AGORAPHOBIA [None]
  - ANOREXIA [None]
  - FEELING ABNORMAL [None]
  - INCREASED APPETITE [None]
  - SELF ESTEEM DECREASED [None]
  - WEIGHT INCREASED [None]
